FAERS Safety Report 5386649-0 (Version None)
Quarter: 2007Q3

REPORT INFORMATION
  Report Type: 
  Country: None (occurrence: None)
  Receive Date: 20070713
  Receipt Date: 20070706
  Transmission Date: 20080115
  Serious: Yes (Death, Life-Threatening, Hospitalization, Other)
  Sender: FDA-Public Use
  Company Number: FR-ELI_LILLY_AND_COMPANY-FR200702004923

PATIENT
  Age: 71 Year
  Sex: Female

DRUGS (6)
  1. FORTEO [Suspect]
     Indication: OSTEOPOROSIS
     Dosage: 20 UG, DAILY (1/D)
     Route: 058
     Dates: start: 20061124, end: 20070216
  2. FORTEO [Suspect]
     Dosage: 20 UG, DAILY (1/D)
     Route: 058
     Dates: start: 20070221, end: 20070307
  3. CORTICOSTEROIDS [Concomitant]
     Indication: ASTHMA
     Dosage: UNK, UNK
     Route: 048
  4. BRICANYL [Concomitant]
     Indication: ASTHMA
     Dosage: UNK, UNK
     Route: 055
  5. ATROVENT [Concomitant]
     Indication: ASTHMA
     Dosage: UNK, UNK
     Route: 055
  6. BUDESONIDE [Concomitant]
     Indication: ASTHMA
     Dosage: UNK, UNK
     Route: 055

REACTIONS (6)
  - ASTHMA [None]
  - DYSPNOEA [None]
  - NEUROMYOPATHY [None]
  - RESPIRATORY DISTRESS [None]
  - SEPTIC SHOCK [None]
  - SPINAL FRACTURE [None]
